FAERS Safety Report 8366457-9 (Version None)
Quarter: 2012Q2

REPORT INFORMATION
  Report Type: 
  Country: None (occurrence: None)
  Receive Date: 20120517
  Receipt Date: 20120511
  Transmission Date: 20120825
  Serious: Yes (Hospitalization)
  Sender: FDA-Public Use
  Company Number: US-BAYER-2012-047324

PATIENT
  Age: 16 Year
  Sex: Female
  Weight: 68.027 kg

DRUGS (5)
  1. FENTANYL-100 [Concomitant]
  2. CODEINE SULFATE [Concomitant]
     Indication: MUSCULOSKELETAL PAIN
  3. CHLORHEXIDINE GLUCONATE [Concomitant]
     Dosage: 0.12 %, UNK
  4. MULTI-VITAMIN [Concomitant]
  5. YAZ [Suspect]

REACTIONS (1)
  - PULMONARY EMBOLISM [None]
